FAERS Safety Report 15515218 (Version 2)
Quarter: 2018Q4

REPORT INFORMATION
  Report Type: Spontaneous
  Country: US (occurrence: US)
  Receive Date: 20181017
  Receipt Date: 20181123
  Transmission Date: 20190205
  Serious: No
  Sender: FDA-Public Use
  Company Number: US-ASTRAZENECA-2018SF20042

PATIENT
  Age: 73 Year
  Sex: Female
  Weight: 52.2 kg

DRUGS (3)
  1. SYMBICORT [Suspect]
     Active Substance: BUDESONIDE\FORMOTEROL FUMARATE DIHYDRATE
     Indication: MULTIPLE ALLERGIES
     Dosage: 80/4.5 MCG 2 PUFFS TWICE PER DAY
     Route: 055
     Dates: start: 2016
  2. MEDROL DOSE PACK [Concomitant]
     Active Substance: METHYLPREDNISOLONE
     Indication: HYPERSENSITIVITY
     Route: 048
     Dates: start: 201809
  3. SYMBICORT [Suspect]
     Active Substance: BUDESONIDE\FORMOTEROL FUMARATE DIHYDRATE
     Indication: ASTHMA
     Dosage: 80/4.5 MCG 2 PUFFS TWICE PER DAY
     Route: 055
     Dates: start: 2016

REACTIONS (12)
  - Asthma [Unknown]
  - Off label use [Unknown]
  - Intentional product misuse [Unknown]
  - Pyrexia [Recovering/Resolving]
  - Drug hypersensitivity [Recovering/Resolving]
  - Device issue [Unknown]
  - Product use in unapproved indication [Unknown]
  - Hypersensitivity [Unknown]
  - Product use issue [Unknown]
  - Rash pruritic [Recovering/Resolving]
  - Underdose [Unknown]
  - Product dose omission [Unknown]

NARRATIVE: CASE EVENT DATE: 2016
